FAERS Safety Report 8138382 (Version 5)
Quarter: 2013Q4

REPORT INFORMATION
  Report Type: Spontaneous
  Country: US (occurrence: US)
  Receive Date: 20110915
  Receipt Date: 20131101
  Transmission Date: 20140711
  Serious: Yes (Hospitalization, Other)
  Sender: FDA-Public Use
  Company Number: US-BAYER-2011-082476

PATIENT
  Age: 29 Year
  Sex: Female
  Weight: 47.62 kg

DRUGS (2)
  1. MIRENA [Suspect]
     Indication: CONTRACEPTION
     Dosage: 20 MCG/24HR, CONT
     Route: 015
     Dates: start: 20110714, end: 20110902
  2. MIRENA [Suspect]
     Indication: CONTRACEPTION
     Dosage: 20 MCG/24HR, CONT
     Route: 015
     Dates: start: 20110714, end: 20110902

REACTIONS (14)
  - Post procedural haemorrhage [None]
  - Procedural pain [None]
  - Uterine perforation [Recovered/Resolved]
  - Vaginal haemorrhage [Recovered/Resolved]
  - Uterine pain [Recovered/Resolved]
  - Uterine haemorrhage [None]
  - Injury [Recovered/Resolved]
  - Emotional distress [None]
  - Device breakage [None]
  - Depression [None]
  - Anxiety [None]
  - Fear [None]
  - Medical device discomfort [Recovered/Resolved]
  - Internal injury [None]
